FAERS Safety Report 6300598-2 (Version None)
Quarter: 2009Q3

REPORT INFORMATION
  Report Type: 
  Country: None (occurrence: None)
  Receive Date: 20090803
  Receipt Date: 20090724
  Transmission Date: 20100115
  Serious: Yes (Other)
  Sender: FDA-Public Use
  Company Number: CHNY2009AU02963

PATIENT
  Age: 2 Year
  Sex: Male

DRUGS (1)
  1. NICOTINE [Suspect]
     Dosage: 14 MG, ONCE/SINGLE, TRANSDERMAL
     Route: 062
     Dates: start: 20090724, end: 20090724

REACTIONS (7)
  - ACCIDENTAL DRUG INTAKE BY CHILD [None]
  - ACCIDENTAL OVERDOSE [None]
  - ASTHENIA [None]
  - PALLOR [None]
  - SALIVARY HYPERSECRETION [None]
  - TOBACCO POISONING [None]
  - VOMITING [None]
